FAERS Safety Report 4825948-5 (Version None)
Quarter: 2005Q4

REPORT INFORMATION
  Report Type: 
  Country: None (occurrence: None)
  Receive Date: 20051014
  Receipt Date: 20050706
  Transmission Date: 20060501
  Serious: No
  Sender: FDA-Public Use
  Company Number: 2005SP001763

PATIENT
  Age: 59 Year
  Sex: Male
  Weight: 90.7194 kg

DRUGS (1)
  1. LUNESTA [Suspect]
     Dosage: 3 MG HS ORAL
     Route: 048
     Dates: start: 20050101

REACTIONS (1)
  - DYSGEUSIA [None]
